FAERS Safety Report 21252456 (Version 5)
Quarter: 2022Q4

REPORT INFORMATION
  Report Type: Spontaneous
  Country: FR (occurrence: FR)
  Receive Date: 20220825
  Receipt Date: 20221101
  Transmission Date: 20230113
  Serious: No
  Sender: FDA-Public Use
  Company Number: FR-ORGANON-O2208FRA001700

PATIENT
  Age: 30 Year
  Sex: Female
  Weight: 48 kg

DRUGS (2)
  1. NEXPLANON [Suspect]
     Active Substance: ETONOGESTREL
     Dosage: 1 IMPLANT
     Route: 059
     Dates: start: 20190206, end: 20220825
  2. NEXPLANON [Concomitant]
     Active Substance: ETONOGESTREL
     Dosage: 1 IMPLANT; A VERY WELL TOLERATED
     Route: 059
     Dates: end: 20190206

REACTIONS (5)
  - Device breakage [Recovered/Resolved]
  - Complication of device removal [Recovered/Resolved]
  - Complication of device removal [Recovered/Resolved]
  - Complication associated with device [Recovered/Resolved]
  - Incorrect product administration duration [Unknown]

NARRATIVE: CASE EVENT DATE: 20220206
